FAERS Safety Report 20403503 (Version 1)
Quarter: 2022Q1

REPORT INFORMATION
  Report Type: Spontaneous
  Country: US (occurrence: US)
  Receive Date: 20220131
  Receipt Date: 20220131
  Transmission Date: 20220424
  Serious: No
  Sender: FDA-Public Use
  Company Number: US-HETERO-HET2022US00211

PATIENT

DRUGS (1)
  1. RITONAVIR [Suspect]
     Active Substance: RITONAVIR
     Indication: SARS-CoV-2 test positive
     Dosage: UNK
     Route: 048
     Dates: start: 20220122

REACTIONS (4)
  - Wrong technique in product usage process [Unknown]
  - Dysphagia [Unknown]
  - Product size issue [Unknown]
  - Product use complaint [Unknown]

NARRATIVE: CASE EVENT DATE: 20220122
